FAERS Safety Report 7625796-7 (Version None)
Quarter: 2011Q3

REPORT INFORMATION
  Report Type: 
  Country: None (occurrence: None)
  Receive Date: 20110721
  Receipt Date: 20110712
  Transmission Date: 20111222
  Serious: Yes (Life-Threatening, Hospitalization, Other)
  Sender: FDA-Public Use
  Company Number: GXKR2011DE02275

PATIENT
  Age: 86 Year
  Sex: Male
  Weight: 98 kg

DRUGS (3)
  1. FUROSEMIDE [Suspect]
     Dosage: 250 MG, BID
     Route: 048
     Dates: start: 20101118
  2. FUROSEMIDE [Interacting]
     Dosage: 250 MG, BID
     Route: 048
     Dates: start: 20101118
  3. XIPAMIDE [Interacting]
     Dosage: 1X0.5 TO 1X1 TABLET/DAY
     Route: 048
     Dates: start: 20110404, end: 20110415

REACTIONS (2)
  - RENAL FAILURE ACUTE [None]
  - DEHYDRATION [None]
